FAERS Safety Report 4702288-6 (Version None)
Quarter: 2005Q2

REPORT INFORMATION
  Report Type: 
  Country: None (occurrence: None)
  Receive Date: 20050628
  Receipt Date: 20050628
  Transmission Date: 20051028
  Serious: Yes (Life-Threatening, Hospitalization, Disabling)
  Sender: FDA-Public Use
  Company Number: None

PATIENT
  Age: 78 Year
  Sex: Male
  Weight: 49.8957 kg

DRUGS (3)
  1. PACERONE [Suspect]
     Indication: ARRHYTHMIA
     Dosage: 400 MG   2X A DAY   ORAL
     Route: 048
     Dates: start: 20040505, end: 20040526
  2. PACERONE [Suspect]
     Indication: CORONARY ARTERY SURGERY
     Dosage: 400 MG   2X A DAY   ORAL
     Route: 048
     Dates: start: 20040505, end: 20040526
  3. STEROIDS [Concomitant]

REACTIONS (4)
  - EXERCISE CAPACITY DECREASED [None]
  - INFLAMMATION [None]
  - LUNG INJURY [None]
  - PNEUMONITIS [None]
